FAERS Safety Report 8842163 (Version 1)
Quarter: 2012Q4

REPORT INFORMATION
  Report Type: Spontaneous
  Country: US (occurrence: None)
  Receive Date: 20121015
  Receipt Date: 20121015
  Transmission Date: 20130627
  Serious: No
  Sender: FDA-Public Use
  Company Number: None

PATIENT
  Age: 23 Year
  Sex: Female
  Weight: 58.06 kg

DRUGS (2)
  1. ROPINIROLE [Suspect]
     Dosage: 1 mg once bedtime po
     Route: 048
  2. ROPINIROLE [Suspect]
     Dosage: 1 mg once bedtime po
     Route: 048

REACTIONS (2)
  - Malaise [None]
  - Product substitution issue [None]
